FAERS Safety Report 18043904 (Version 1)
Quarter: 2020Q3

REPORT INFORMATION
  Report Type: Spontaneous
  Country: NO (occurrence: NO)
  Receive Date: 20200720
  Receipt Date: 20200720
  Transmission Date: 20201103
  Serious: Yes (Death, Life-Threatening, Other)
  Sender: FDA-Public Use
  Company Number: NO-ELITE LABORATORIES INC.-2020ELT00047

PATIENT
  Age: 30 Year
  Sex: Male
  Weight: 50 kg

DRUGS (10)
  1. RAMIPRIL. [Concomitant]
     Active Substance: RAMIPRIL
     Indication: DUCHENNE MUSCULAR DYSTROPHY
     Route: 065
  2. LACTULOSE. [Concomitant]
     Active Substance: LACTULOSE
     Indication: CONSTIPATION
     Route: 065
  3. ACETAMINOPHEN AND CODEINE [Suspect]
     Active Substance: ACETAMINOPHEN\CODEINE PHOSPHATE
     Indication: ANALGESIC THERAPY
     Dosage: 3 G [DAY 1]
     Route: 042
  4. ACETAMINOPHEN AND CODEINE [Suspect]
     Active Substance: ACETAMINOPHEN\CODEINE PHOSPHATE
     Dosage: 2 G [DAY 3]
     Route: 048
  5. ACETAMINOPHEN AND CODEINE [Suspect]
     Active Substance: ACETAMINOPHEN\CODEINE PHOSPHATE
     Dosage: 0.5 G [DAY 5]
     Route: 048
  6. ACETAMINOPHEN AND CODEINE [Suspect]
     Active Substance: ACETAMINOPHEN\CODEINE PHOSPHATE
     Dosage: 2 G [DAY 3]
     Route: 042
  7. BISOPROLOL [Concomitant]
     Active Substance: BISOPROLOL
     Indication: DUCHENNE MUSCULAR DYSTROPHY
     Route: 065
  8. ACETAMINOPHEN AND CODEINE [Suspect]
     Active Substance: ACETAMINOPHEN\CODEINE PHOSPHATE
     Dosage: 3 G [DAY 4]
     Route: 048
  9. ACETAMINOPHEN AND CODEINE [Suspect]
     Active Substance: ACETAMINOPHEN\CODEINE PHOSPHATE
     Dosage: DOSES WERE GIVEN AS 10 DOSES OF 1 G PARACETAMOL AND 9 DOSES OF 0.5 G IN COMBINATION WITH 30 MG OF CO
     Route: 065
  10. ACETAMINOPHEN AND CODEINE [Suspect]
     Active Substance: ACETAMINOPHEN\CODEINE PHOSPHATE
     Dosage: 4 G [DAY 2]
     Route: 048

REACTIONS (4)
  - Respiratory failure [Not Recovered/Not Resolved]
  - Acute hepatic failure [Fatal]
  - Circulatory collapse [Not Recovered/Not Resolved]
  - Loss of consciousness [Not Recovered/Not Resolved]
